FAERS Safety Report 4432328-3 (Version None)
Quarter: 2004Q3

REPORT INFORMATION
  Report Type: 
  Country: None (occurrence: None)
  Receive Date: 20040825
  Receipt Date: 20031119
  Transmission Date: 20050211
  Serious: Yes (Hospitalization)
  Sender: FDA-Public Use
  Company Number: GB-AMGEN-UK057581

PATIENT
  Sex: Male
  Weight: 103 kg

DRUGS (12)
  1. KINERET [Suspect]
     Indication: RHEUMATOID ARTHRITIS
     Dates: start: 20021201, end: 20030401
  2. METHOTREXATE [Concomitant]
  3. FOLIC ACID [Concomitant]
  4. ASPIRIN [Concomitant]
  5. BISOPROLOL FUMARATE [Concomitant]
  6. ELANTAN - SLOW RELEASE [Concomitant]
  7. LANSOPRAZOLE [Concomitant]
  8. ADIZEM [Concomitant]
  9. FRUSEMIDE [Concomitant]
  10. NICORANDIL [Concomitant]
  11. PERINDOPRIL [Concomitant]
  12. ADALIMUMAB [Concomitant]
     Dates: start: 20030401

REACTIONS (2)
  - ANGINA PECTORIS [None]
  - CONDITION AGGRAVATED [None]
